FAERS Safety Report 22993646 (Version 2)
Quarter: 2023Q4

REPORT INFORMATION
  Report Type: Spontaneous
  Country: CN (occurrence: None)
  Receive Date: 20230927
  Receipt Date: 20231003
  Transmission Date: 20240110
  Serious: Yes (Other)
  Sender: FDA-Public Use
  Company Number: 2023A194824

PATIENT
  Age: 56 Year
  Sex: Male
  Weight: 78 kg

DRUGS (1)
  1. TAGRISSO [Suspect]
     Active Substance: OSIMERTINIB
     Indication: Lung neoplasm malignant
     Dosage: ONE TABLET AT 7:00 IN THE MORNING EVERY DAY
     Route: 048
     Dates: start: 2023

REACTIONS (5)
  - Renal injury [Unknown]
  - Blood creatinine increased [Recovered/Resolved]
  - Blood uric acid increased [Not Recovered/Not Resolved]
  - Oliguria [Unknown]
  - Diarrhoea [Not Recovered/Not Resolved]

NARRATIVE: CASE EVENT DATE: 20230821
